FAERS Safety Report 6557186-2 (Version None)
Quarter: 2010Q1

REPORT INFORMATION
  Report Type: 
  Country: None (occurrence: None)
  Receive Date: 20100127
  Receipt Date: 20100127
  Transmission Date: 20100710
  Serious: Yes (Hospitalization)
  Sender: FDA-Public Use
  Company Number: None

PATIENT
  Age: 67 Month
  Sex: Male
  Weight: 108.9 kg

DRUGS (2)
  1. LEVOFLOXACIN [Suspect]
     Indication: OTITIS EXTERNA
     Dosage: 500 EVERYDAY PO
     Route: 048
     Dates: start: 20091211, end: 20091217
  2. CIPROFLAXACIN [Suspect]
     Indication: OTITIS EXTERNA
     Dosage: DROPS BID EAR
     Route: 001
     Dates: start: 20091211, end: 20091217

REACTIONS (2)
  - ANGIOEDEMA [None]
  - PHOTOSENSITIVITY REACTION [None]
